FAERS Safety Report 21353403 (Version 2)
Quarter: 2022Q3

REPORT INFORMATION
  Report Type: Spontaneous
  Country: US (occurrence: US)
  Receive Date: 20220920
  Receipt Date: 20220923
  Transmission Date: 20221027
  Serious: No
  Sender: FDA-Public Use
  Company Number: US-JNJFOC-20220927748

PATIENT
  Sex: Female

DRUGS (3)
  1. IBUPROFEN [Suspect]
     Active Substance: IBUPROFEN
     Indication: Migraine
     Route: 065
  2. COVID-19 VACCINE [Concomitant]
     Indication: Immunisation
     Route: 065
     Dates: start: 20210119
  3. COVID-19 VACCINE [Concomitant]
     Route: 065
     Dates: start: 20201229

REACTIONS (1)
  - Drug ineffective [Unknown]
